FAERS Safety Report 6726811-5 (Version None)
Quarter: 2010Q2

REPORT INFORMATION
  Report Type: 
  Country: None (occurrence: None)
  Receive Date: 20100516
  Receipt Date: 20100505
  Transmission Date: 20101027
  Serious: Yes (Hospitalization)
  Sender: FDA-Public Use
  Company Number: US-JNJFOC-20100503464

PATIENT
  Age: 6 Year
  Sex: Male
  Weight: 32.66 kg

DRUGS (7)
  1. CHILDREN'S MOTRIN [Suspect]
     Route: 048
  2. CHILDREN'S MOTRIN [Suspect]
     Indication: PYREXIA
     Route: 048
  3. CHILDREN'S TYLENOL FLU [Suspect]
     Route: 048
  4. CHILDREN'S TYLENOL FLU [Suspect]
     Indication: PYREXIA
     Route: 048
  5. PULMICORT [Concomitant]
  6. ALBUTEROL [Concomitant]
  7. TAMIFLU [Suspect]

REACTIONS (7)
  - ABDOMINAL PAIN UPPER [None]
  - DEHYDRATION [None]
  - DRUG INEFFECTIVE [None]
  - PRODUCT QUALITY ISSUE [None]
  - VIRAL INFECTION [None]
  - VOMITING [None]
  - WEIGHT DECREASED [None]
